FAERS Safety Report 6779446-2 (Version None)
Quarter: 2010Q2

REPORT INFORMATION
  Report Type: 
  Country: None (occurrence: None)
  Receive Date: 20100618
  Receipt Date: 20100609
  Transmission Date: 20101027
  Serious: Yes (Hospitalization)
  Sender: FDA-Public Use
  Company Number: IT-PFIZER INC-2010072082

PATIENT
  Age: 82 Year
  Sex: Female

DRUGS (9)
  1. TOTALIP [Suspect]
     Indication: HYPERCHOLESTEROLAEMIA
     Dosage: 20 MG, X/DAY
     Route: 048
     Dates: start: 20100101, end: 20100527
  2. COLCHICINE [Suspect]
     Indication: ARTHRALGIA
     Dosage: 1 MG, X/DAY
     Route: 048
     Dates: start: 20100505, end: 20100525
  3. ALLOPURINOL [Concomitant]
     Indication: HYPERURICAEMIA
     Dosage: 150 MG, UNK
     Route: 048
     Dates: start: 20100505, end: 20100525
  4. ARANESP [Concomitant]
     Dosage: 20 UG
     Route: 058
     Dates: start: 20100517, end: 20100527
  5. COTAREG ^NOVARTIS^ [Concomitant]
  6. ACETYLSALICYLATE LYSINE [Concomitant]
  7. CATAPRESAN [Concomitant]
  8. NIFEDIPINE [Concomitant]
  9. CALCIFEDIOL [Concomitant]

REACTIONS (2)
  - ENTEROCOLITIS [None]
  - RHABDOMYOLYSIS [None]
